FAERS Safety Report 12568709 (Version 2)
Quarter: 2024Q2

REPORT INFORMATION
  Report Type: Spontaneous
  Country: US (occurrence: US)
  Receive Date: 20160719
  Receipt Date: 20240523
  Transmission Date: 20240716
  Serious: No
  Sender: FDA-Public Use
  Company Number: US-BIOGEN-2016BI00265274

PATIENT
  Sex: Male

DRUGS (9)
  1. TECFIDERA [Suspect]
     Active Substance: DIMETHYL FUMARATE
     Indication: Multiple sclerosis
     Route: 050
     Dates: start: 20131008
  2. HYDROCODONE [Concomitant]
     Active Substance: HYDROCODONE
     Indication: Product used for unknown indication
     Route: 050
  3. MELOXICAM [Concomitant]
     Active Substance: MELOXICAM
     Indication: Product used for unknown indication
     Route: 050
  4. FUROSEMIDE [Concomitant]
     Active Substance: FUROSEMIDE
     Indication: Product used for unknown indication
     Route: 050
  5. PROAIR HFA [Concomitant]
     Active Substance: ALBUTEROL SULFATE
     Indication: Product used for unknown indication
     Route: 050
  6. CEPHALEXIN [Concomitant]
     Active Substance: CEPHALEXIN
     Indication: Product used for unknown indication
     Route: 050
  7. SULFAMETHOXAZOLE\TRIMETHOPRIM [Concomitant]
     Active Substance: SULFAMETHOXAZOLE\TRIMETHOPRIM
     Indication: Product used for unknown indication
     Route: 050
  8. VITAMIN D [Concomitant]
     Active Substance: VITAMIN D NOS
     Indication: Product used for unknown indication
     Route: 050
  9. GABAPENTIN [Concomitant]
     Active Substance: GABAPENTIN
     Indication: Product used for unknown indication
     Route: 050

REACTIONS (4)
  - Weight decreased [Unknown]
  - Peripheral swelling [Unknown]
  - Blood test abnormal [Recovered/Resolved]
  - Hepatic function abnormal [Recovered/Resolved]
